FAERS Safety Report 17604071 (Version 1)
Quarter: 2020Q1

REPORT INFORMATION
  Report Type: Spontaneous
  Country: US (occurrence: US)
  Receive Date: 20200331
  Receipt Date: 20200331
  Transmission Date: 20200409
  Serious: No
  Sender: FDA-Public Use
  Company Number: US-JNJFOC-20200323574

PATIENT
  Age: 38 Year
  Sex: Male
  Weight: 86.26 kg

DRUGS (1)
  1. SPRAVATO [Suspect]
     Active Substance: ESKETAMINE
     Indication: PRODUCT USED FOR UNKNOWN INDICATION
     Route: 065
     Dates: start: 20200207

REACTIONS (5)
  - Anger [Unknown]
  - Product dose omission [Unknown]
  - Anxiety [Unknown]
  - Affect lability [Unknown]
  - Affective disorder [Unknown]

NARRATIVE: CASE EVENT DATE: 2020
